FAERS Safety Report 11894371 (Version 2)
Quarter: 2016Q1

REPORT INFORMATION
  Report Type: Spontaneous
  Country: US (occurrence: US)
  Receive Date: 20160107
  Receipt Date: 20160119
  Transmission Date: 20160526
  Serious: No
  Sender: FDA-Public Use
  Company Number: PHEH2015US026609

PATIENT
  Age: 34 Year
  Sex: Female

DRUGS (3)
  1. NO TREATMENT RECEIVED NOMED [Suspect]
     Active Substance: UNSPECIFIED INGREDIENT
  2. NO TREATMENT RECEIVED NOMED [Suspect]
     Active Substance: UNSPECIFIED INGREDIENT
     Indication: PRODUCT USED FOR UNKNOWN INDICATION
     Route: 065
  3. GLEEVEC [Suspect]
     Active Substance: IMATINIB MESYLATE
     Indication: CHRONIC MYELOID LEUKAEMIA
     Route: 065

REACTIONS (18)
  - Skin discolouration [Unknown]
  - Abdominal pain [Unknown]
  - Fatigue [Unknown]
  - Pyrexia [Unknown]
  - Asthenia [Unknown]
  - Infection [Unknown]
  - Menorrhagia [Unknown]
  - Amnesia [Unknown]
  - Nausea [Unknown]
  - Weight increased [Unknown]
  - Back pain [Unknown]
  - Myalgia [Unknown]
  - Eye swelling [Unknown]
  - Headache [Unknown]
  - Muscle spasms [Unknown]
  - Swelling face [Unknown]
  - Dyspnoea [Unknown]
  - Rash [Unknown]
